FAERS Safety Report 5865111-2 (Version None)
Quarter: 2008Q3

REPORT INFORMATION
  Report Type: 
  Country: None (occurrence: None)
  Receive Date: 20080829
  Receipt Date: 20080825
  Transmission Date: 20090109
  Serious: Yes (Other)
  Sender: FDA-Public Use
  Company Number: A0744133A

PATIENT
  Sex: Female

DRUGS (2)
  1. TYKERB [Suspect]
     Indication: BREAST CANCER
     Dosage: 1250MG PER DAY
     Route: 048
     Dates: start: 20080625
  2. TAMOXIFEN CITRATE [Concomitant]

REACTIONS (3)
  - ADVERSE EVENT [None]
  - ERYTHEMA [None]
  - HAEMATOMA [None]
